FAERS Safety Report 18427158 (Version 2)
Quarter: 2020Q4

REPORT INFORMATION
  Report Type: Spontaneous
  Country: US (occurrence: US)
  Receive Date: 20201026
  Receipt Date: 20201110
  Transmission Date: 20210114
  Serious: Yes (Disabling, Other)
  Sender: FDA-Public Use
  Company Number: US-BAYER-2020-224534

PATIENT
  Age: 46 Year
  Sex: Female

DRUGS (1)
  1. ESTRADIOL. [Suspect]
     Active Substance: ESTRADIOL
     Dosage: 0.05 MG
     Route: 062
     Dates: start: 201908

REACTIONS (7)
  - Pain in extremity [None]
  - General physical health deterioration [None]
  - COVID-19 [None]
  - Breast disorder female [None]
  - Rash [None]
  - Hemiplegia [None]
  - Muscle atrophy [None]

NARRATIVE: CASE EVENT DATE: 20200310
